FAERS Safety Report 5857334-3 (Version None)
Quarter: 2008Q3

REPORT INFORMATION
  Report Type: 
  Country: None (occurrence: None)
  Receive Date: 20080826
  Receipt Date: 20080819
  Transmission Date: 20090109
  Serious: Yes (Hospitalization)
  Sender: FDA-Public Use
  Company Number: FR-WYE-G02032708

PATIENT
  Age: 38 Year
  Sex: Female

DRUGS (7)
  1. EFFEXOR [Suspect]
     Indication: DEPRESSION
     Dosage: 150 MG TOTAL DAILY
     Route: 048
     Dates: start: 20050101
  2. ANAFRANIL [Suspect]
     Dosage: 3 DOSE-FORM TOTAL DAILY
     Route: 048
     Dates: start: 20050101, end: 20080201
  3. EUPHYTOSE [Concomitant]
     Dosage: UNKNOWN
     Route: 048
     Dates: end: 20080201
  4. NOCTAMID [Suspect]
     Route: 048
     Dates: start: 20050101, end: 20080201
  5. ZYPREXA [Suspect]
     Route: 048
     Dates: start: 20050101, end: 20080201
  6. VALIUM [Suspect]
     Route: 048
     Dates: start: 20050101, end: 20080201
  7. TERCIAN [Suspect]
     Route: 048
     Dates: start: 20050101, end: 20080201

REACTIONS (2)
  - DRUG EXPOSURE DURING PREGNANCY [None]
  - GESTATIONAL DIABETES [None]
